FAERS Safety Report 21242500 (Version 1)
Quarter: 2022Q3

REPORT INFORMATION
  Report Type: Report from Study
  Country: US (occurrence: None)
  Receive Date: 20220823
  Receipt Date: 20220823
  Transmission Date: 20221026
  Serious: Yes (Other)
  Sender: FDA-Public Use
  Company Number: US-ROCHE-3139191

PATIENT
  Age: 77 Year
  Sex: Male
  Weight: 80.3 kg

DRUGS (20)
  1. RANIBIZUMAB [Suspect]
     Active Substance: RANIBIZUMAB
     Indication: Neovascular age-related macular degeneration
     Dosage: DOSE OF STUDY DRUG FIRST ADMINISTERED 100MG/ML, ?DOSE LAST STUDY DRUG ADMIN PRIOR AE/SAE 100 MG/ML?S
     Route: 050
     Dates: start: 20210105
  2. RANIBIZUMAB [Suspect]
     Active Substance: RANIBIZUMAB
  3. RANIBIZUMAB [Suspect]
     Active Substance: RANIBIZUMAB
  4. RANIBIZUMAB [Suspect]
     Active Substance: RANIBIZUMAB
  5. RANIBIZUMAB [Suspect]
     Active Substance: RANIBIZUMAB
  6. RANIBIZUMAB [Concomitant]
     Active Substance: RANIBIZUMAB
     Dosage: DOSE LAST STUDY DRUG ADMIN PRIOR AE AND SAE: 10 MG/ML
     Route: 050
  7. SIMVASTATIN [Concomitant]
     Active Substance: SIMVASTATIN
     Indication: Hypercholesterolaemia
     Dosage: MG
     Route: 048
     Dates: start: 2004
  8. CIALIS [Concomitant]
     Active Substance: TADALAFIL
     Indication: Benign prostatic hyperplasia
     Dosage: MG
     Route: 048
     Dates: start: 2005
  9. BLUEBERRY [Concomitant]
     Active Substance: BLUEBERRY
     Dosage: MG
     Route: 048
     Dates: start: 201804
  10. LOSARTAN [Concomitant]
     Active Substance: LOSARTAN
     Indication: Hypertension
     Dosage: MG
     Route: 048
     Dates: start: 201810
  11. OFLOXACIN [Concomitant]
     Active Substance: OFLOXACIN
     Dosage: GTT
     Route: 047
     Dates: start: 20190803
  12. OFLOXACIN [Concomitant]
     Active Substance: OFLOXACIN
     Dosage: GTT
     Route: 047
     Dates: start: 20200201
  13. OFLOXACIN [Concomitant]
     Active Substance: OFLOXACIN
     Dates: start: 20211205, end: 20211209
  14. OFLOXACIN [Concomitant]
     Active Substance: OFLOXACIN
     Dosage: GTT
     Route: 061
     Dates: start: 20220512, end: 20220523
  15. OFLOXACIN [Concomitant]
     Active Substance: OFLOXACIN
     Dosage: GTT
     Route: 061
     Dates: start: 20220524
  16. TIMOLOL [Concomitant]
     Active Substance: TIMOLOL
     Indication: Intraocular pressure increased
     Dosage: GTT
     Route: 047
     Dates: start: 20200804
  17. TIMOLOL [Concomitant]
     Active Substance: TIMOLOL
     Dosage: GTT
     Route: 047
     Dates: start: 20200804
  18. TIMOLOL [Concomitant]
     Active Substance: TIMOLOL
     Dosage: GTT
     Route: 047
     Dates: start: 20200804
  19. PREDNISOLONE [Concomitant]
     Active Substance: PREDNISOLONE
     Dosage: GTT
     Route: 061
     Dates: start: 20220518, end: 20220523
  20. PREDNISOLONE [Concomitant]
     Active Substance: PREDNISOLONE
     Dosage: GTT
     Route: 061
     Dates: start: 20220524

REACTIONS (2)
  - Device issue [Unknown]
  - No adverse event [Unknown]

NARRATIVE: CASE EVENT DATE: 20211207
